FAERS Safety Report 9408925 (Version 2)
Quarter: 2013Q3

REPORT INFORMATION
  Report Type: Other
  Country: JP (occurrence: JP)
  Receive Date: 20130719
  Receipt Date: 20130809
  Transmission Date: 20140515
  Serious: Yes (Life-Threatening, Hospitalization, Other)
  Sender: FDA-Public Use
  Company Number: JP-BRISTOL-MYERS SQUIBB COMPANY-19108901

PATIENT
  Age: 69 Year
  Sex: Male

DRUGS (3)
  1. METGLUCO [Suspect]
     Indication: TYPE 2 DIABETES MELLITUS
     Route: 048
     Dates: start: 201204, end: 20120910
  2. GLIBENCLAMIDE [Concomitant]
     Indication: TYPE 2 DIABETES MELLITUS
     Route: 048
     Dates: start: 201204, end: 20120910
  3. CARBAMAZEPINE [Concomitant]
     Route: 048
     Dates: end: 20120910

REACTIONS (1)
  - Lactic acidosis [Recovering/Resolving]
